FAERS Safety Report 5629309-0 (Version None)
Quarter: 2008Q1

REPORT INFORMATION
  Report Type: 
  Country: None (occurrence: None)
  Receive Date: 20080218
  Receipt Date: 20080208
  Transmission Date: 20080703
  Serious: Yes (Life-Threatening, Hospitalization, Other)
  Sender: FDA-Public Use
  Company Number: DE-ELI_LILLY_AND_COMPANY-DE200802001921

PATIENT
  Age: 71 Year
  Sex: Male

DRUGS (9)
  1. ZYPREXA [Suspect]
     Indication: SCHIZOPHRENIA
     Dosage: 25 MG, DAILY (1/D)
     Route: 048
  2. MELPERONE [Concomitant]
     Dosage: 100 MG, UNK
     Route: 048
  3. BENPERIDOL [Concomitant]
     Dosage: 8 MG, UNK
     Route: 048
  4. BIPERIDEN HYDROCHLORIDE TAB [Concomitant]
     Dosage: 4 MG, UNK
     Route: 048
  5. ZOLPIDEM [Concomitant]
     Dosage: 10 MG, UNK
     Route: 048
  6. ASPIRIN [Concomitant]
     Dosage: 100 MG, UNK
     Route: 048
  7. TRIAMTERENE AND HYDROCHLOROTHIAZIDE [Concomitant]
     Route: 048
  8. BELOC ZOK [Concomitant]
     Dosage: 23.5 MG, UNK
     Route: 048
  9. ALNA [Concomitant]
     Dosage: 0.4 MG, UNK
     Route: 048

REACTIONS (3)
  - ASPIRATION [None]
  - DYSPHAGIA [None]
  - HOSPITALISATION [None]
